FAERS Safety Report 10485999 (Version 1)
Quarter: 2014Q3

REPORT INFORMATION
  Report Type: Spontaneous
  Country: US (occurrence: None)
  Receive Date: 20140930
  Receipt Date: 20140930
  Transmission Date: 20150326
  Serious: No
  Sender: FDA-Public Use
  Company Number: None

PATIENT
  Age: 51 Year
  Sex: Male

DRUGS (12)
  1. TRANILAST [Suspect]
     Active Substance: TRANILAST
  2. DM80 [Concomitant]
  3. METHADONE [Concomitant]
     Active Substance: METHADONE HYDROCHLORIDE
  4. IMO [Concomitant]
  5. PROPYLENE  GLYCOL [Concomitant]
     Active Substance: PROPYLENE GLYCOL
  6. CYCLBENZAPRINE [Concomitant]
  7. LIDOCAINE. [Concomitant]
     Active Substance: LIDOCAINE
  8. BACLOFEN. [Concomitant]
     Active Substance: BACLOFEN
  9. GABAPENTIN. [Concomitant]
     Active Substance: GABAPENTIN
  10. GABAPENTIN. [Concomitant]
     Active Substance: GABAPENTIN
  11. COMBINED AS TOPICAL CREAM WITH KETAMINE [Concomitant]
     Dosage: PER FDA REP -PUT IN AS SHOWN ON FORM
  12. TIZANIDINE [Concomitant]
     Active Substance: TIZANIDINE

REACTIONS (1)
  - Product formulation issue [None]

NARRATIVE: CASE EVENT DATE: 20140902
